FAERS Safety Report 13264141 (Version 1)
Quarter: 2017Q1

REPORT INFORMATION
  Report Type: Spontaneous
  Country: US (occurrence: US)
  Receive Date: 20170222
  Receipt Date: 20170222
  Transmission Date: 20170428
  Serious: Yes (Death, Hospitalization)
  Sender: FDA-Public Use
  Company Number: None

PATIENT
  Age: 77 Year
  Sex: Male

DRUGS (13)
  1. MAGNESIUM [Concomitant]
     Active Substance: MAGNESIUM
  2. NEURONTIN [Concomitant]
     Active Substance: GABAPENTIN
  3. LEVEMIR [Concomitant]
     Active Substance: INSULIN DETEMIR
  4. JANUVIA [Concomitant]
     Active Substance: SITAGLIPTIN PHOSPHATE
  5. FE [Concomitant]
     Active Substance: IRON
  6. ERIVEDGE [Suspect]
     Active Substance: VISMODEGIB
     Indication: NEOPLASM SKIN
     Dosage: 150MG CAP 1 CAP QD PO
     Route: 048
     Dates: start: 20150630
  7. DOXYCYCLINE. [Concomitant]
     Active Substance: DOXYCYCLINE
  8. FEN [Concomitant]
  9. NORVASC [Concomitant]
     Active Substance: AMLODIPINE BESYLATE
  10. BACLO [Concomitant]
  11. OMEPRAZOLE. [Concomitant]
     Active Substance: OMEPRAZOLE
  12. HUMALOG [Concomitant]
     Active Substance: INSULIN LISPRO
  13. CYMBALTA [Concomitant]
     Active Substance: DULOXETINE HYDROCHLORIDE

REACTIONS (1)
  - Hospitalisation [None]

NARRATIVE: CASE EVENT DATE: 20170131
